FAERS Safety Report 16710470 (Version 2)
Quarter: 2019Q4

REPORT INFORMATION
  Report Type: Spontaneous
  Country: US (occurrence: US)
  Receive Date: 20190816
  Receipt Date: 20191010
  Transmission Date: 20200122
  Serious: Yes (Death, Hospitalization, Other)
  Sender: FDA-Public Use
  Company Number: US-PFIZER INC-2019347910

PATIENT
  Age: 84 Year
  Sex: Male
  Weight: 77.98 kg

DRUGS (9)
  1. XANAX [Suspect]
     Active Substance: ALPRAZOLAM
     Indication: AGITATION
     Dosage: 0.25 MG, 4X/DAY (4X IN 24 HRS)
  2. SELEGILINE [Concomitant]
     Active Substance: SELEGILINE
     Dosage: UNK
  3. XANAX [Suspect]
     Active Substance: ALPRAZOLAM
     Dosage: 0.25 MG, AS NEEDED (3X A DAY)
  4. SEROQUEL [Concomitant]
     Active Substance: QUETIAPINE FUMARATE
     Dosage: 100 MG, 3X/DAY (3X EVERY 24 HR)
  5. CARBIDOPA AND LEVODOPA [Concomitant]
     Active Substance: CARBIDOPA\LEVODOPA
     Dosage: UNK
  6. NUPLAZID [Concomitant]
     Active Substance: PIMAVANSERIN TARTRATE
     Dosage: UNK UNK, 1X/DAY
  7. LORAZEPAM. [Concomitant]
     Active Substance: LORAZEPAM
     Dosage: UNK UNK, 2X/DAY
  8. XANAX [Suspect]
     Active Substance: ALPRAZOLAM
     Dosage: 0.125 MG, AS NEEDED (ONLY 1/2 OF 0.25 MG)
  9. ENTACAPONE. [Concomitant]
     Active Substance: ENTACAPONE
     Dosage: UNK

REACTIONS (7)
  - Therapeutic product effect incomplete [Unknown]
  - Parkinson^s disease [Fatal]
  - Off label use [Unknown]
  - Dementia [Unknown]
  - Hallucination [Unknown]
  - Product use in unapproved indication [Unknown]
  - Fall [Unknown]
